FAERS Safety Report 15042532 (Version 1)
Quarter: 2018Q2

REPORT INFORMATION
  Report Type: Spontaneous
  Country: AU (occurrence: AU)
  Receive Date: 20180621
  Receipt Date: 20180621
  Transmission Date: 20180711
  Serious: Yes (Other)
  Sender: FDA-Public Use
  Company Number: AU-SUNOVION-2018DSP007462

PATIENT
  Age: 50 Year
  Sex: Male
  Weight: 98 kg

DRUGS (8)
  1. ARIPIPRAZOLE GH [Concomitant]
     Indication: SCHIZOPHRENIA
     Route: 065
  2. CLOPINE [Concomitant]
     Active Substance: CLOZAPINE
     Dosage: 200 MG, UNK
     Route: 065
     Dates: end: 20180405
  3. CLOPINE [Concomitant]
     Active Substance: CLOZAPINE
     Indication: SCHIZOPHRENIA
     Dosage: UNK
     Route: 065
     Dates: start: 20180321
  4. ESOMEPRAZOLE ACTAVIS [Concomitant]
     Active Substance: ESOMEPRAZOLE
     Dosage: UNK
     Route: 065
  5. LATUDA [Suspect]
     Active Substance: LURASIDONE HYDROCHLORIDE
     Indication: SCHIZOPHRENIA
     Route: 065
  6. DESVENLAFAXINE. [Concomitant]
     Active Substance: DESVENLAFAXINE
     Dosage: UNK
     Route: 065
  7. OLANZAPINE. [Concomitant]
     Active Substance: OLANZAPINE
     Indication: SCHIZOPHRENIA
     Dosage: UNK
     Route: 065
  8. CLOPINE [Concomitant]
     Active Substance: CLOZAPINE
     Dosage: 100 MG, UNK
     Route: 065

REACTIONS (6)
  - Drug ineffective [Unknown]
  - Pericarditis [Recovered/Resolved]
  - C-reactive protein increased [Recovering/Resolving]
  - Chest pain [Unknown]
  - Blood creatine phosphokinase increased [Recovering/Resolving]
  - Cough [Unknown]

NARRATIVE: CASE EVENT DATE: 20180405
